FAERS Safety Report 12687837 (Version 6)
Quarter: 2017Q1

REPORT INFORMATION
  Report Type: Report from Study
  Country: US (occurrence: US)
  Receive Date: 20160825
  Receipt Date: 20170125
  Transmission Date: 20170428
  Serious: Yes (Hospitalization)
  Sender: FDA-Public Use
  Company Number: US-ACTELION-A-NJ2016-136960

PATIENT
  Age: 76 Year
  Sex: Female
  Weight: 58.5 kg

DRUGS (6)
  1. METOPROLOL. [Concomitant]
     Active Substance: METOPROLOL
  2. REVATIO [Concomitant]
     Active Substance: SILDENAFIL CITRATE
  3. AMLODIPINE [Concomitant]
     Active Substance: AMLODIPINE BESYLATE
  4. UPTRAVI [Suspect]
     Active Substance: SELEXIPAG
     Indication: PULMONARY ARTERIAL HYPERTENSION
     Dosage: 1000 MCG, BID
     Route: 048
     Dates: start: 20160317
  5. FUROSEMIDE. [Concomitant]
     Active Substance: FUROSEMIDE
  6. SILDENAFIL. [Concomitant]
     Active Substance: SILDENAFIL

REACTIONS (18)
  - Hyperhidrosis [Unknown]
  - Arthralgia [Unknown]
  - Malaise [Unknown]
  - Palpitations [Unknown]
  - Fluid retention [Unknown]
  - Nasopharyngitis [Unknown]
  - Hypotension [Unknown]
  - Memory impairment [Unknown]
  - Chest discomfort [Unknown]
  - Endotracheal intubation [Recovered/Resolved]
  - Decreased appetite [Unknown]
  - Dyspnoea [Unknown]
  - Arthritis [Unknown]
  - Abdominal distension [Unknown]
  - Hypertension [Unknown]
  - Anxiety [Unknown]
  - Oedema [Unknown]
  - Drug dose omission [Unknown]

NARRATIVE: CASE EVENT DATE: 201610
